FAERS Safety Report 7893046-2 (Version None)
Quarter: 2011Q4

REPORT INFORMATION
  Report Type: 
  Country: None (occurrence: None)
  Receive Date: 20111104
  Receipt Date: 20110805
  Transmission Date: 20120403
  Serious: No
  Sender: FDA-Public Use
  Company Number: US-GLAXOSMITHKLINE-A0939930A

PATIENT
  Sex: Male

DRUGS (2)
  1. REQUIP [Concomitant]
  2. HORIZANT [Suspect]
     Indication: RESTLESS LEGS SYNDROME
     Dosage: 1TAB PER DAY
     Route: 048
     Dates: start: 20110726

REACTIONS (1)
  - ABNORMAL DREAMS [None]
